FAERS Safety Report 4299285-4 (Version None)
Quarter: 2004Q1

REPORT INFORMATION
  Report Type: 
  Country: None (occurrence: None)
  Receive Date: 20040217
  Receipt Date: 20040129
  Transmission Date: 20041129
  Serious: Yes (Hospitalization)
  Sender: FDA-Public Use
  Company Number: 191605

PATIENT
  Age: 59 Year
  Sex: Female
  Weight: 99.7913 kg

DRUGS (6)
  1. AVONEX [Suspect]
     Indication: MULTIPLE SCLEROSIS
     Dosage: 30 MCG QW IM
     Route: 030
     Dates: start: 20010101, end: 20030101
  2. LASIX [Concomitant]
  3. BLOOD PRESSURE MEDICATION (NOS) [Concomitant]
  4. SYNTHROID [Concomitant]
  5. POTASSIUM [Concomitant]
  6. NEURONTIN [Concomitant]

REACTIONS (7)
  - CONDITION AGGRAVATED [None]
  - CONFUSIONAL STATE [None]
  - DEPRESSION [None]
  - FALL [None]
  - HEPATOCELLULAR DAMAGE [None]
  - SKIN LESION [None]
  - SYNCOPE [None]
